FAERS Safety Report 5255337-3 (Version None)
Quarter: 2007Q1

REPORT INFORMATION
  Report Type: 
  Country: None (occurrence: None)
  Receive Date: 20070305
  Receipt Date: 20070223
  Transmission Date: 20070707
  Serious: Yes (Other)
  Sender: FDA-Public Use
  Company Number: TH-GLAXOSMITHKLINE-B0460563A

PATIENT
  Age: 1 Day
  Sex: Female
  Weight: 2.1 kg

DRUGS (8)
  1. ZIDOVUDINE [Suspect]
     Indication: ANTIVIRAL PROPHYLAXIS
     Dosage: 300MG EIGHT TIMES PER DAY
     Dates: start: 20061030, end: 20061030
  2. NEVIRAPINE [Suspect]
     Indication: ANTIVIRAL PROPHYLAXIS
     Dosage: 200MG SINGLE DOSE
     Dates: start: 20061030, end: 20061030
  3. DIDANOSINE [Suspect]
     Indication: ANTIVIRAL PROPHYLAXIS
     Dosage: 400MG SINGLE DOSE
     Dates: start: 20061030, end: 20061030
  4. AZT [Suspect]
     Indication: ANTIVIRAL PROPHYLAXIS
     Dates: start: 20060907
  5. NEVIRAPINE [Suspect]
     Route: 048
     Dates: start: 20061101
  6. AZT [Concomitant]
     Dosage: .8MG SINGLE DOSE
     Route: 048
  7. VITAMIN K1 [Concomitant]
     Dosage: 1MG SINGLE DOSE
     Route: 030
  8. AZT [Concomitant]
     Dosage: .4MG FOUR TIMES PER DAY
     Route: 048
     Dates: start: 20061030

REACTIONS (3)
  - DRUG EXPOSURE DURING PREGNANCY [None]
  - HYPOGLYCAEMIA [None]
  - SMALL FOR DATES BABY [None]
